FAERS Safety Report 4790685-2 (Version None)
Quarter: 2005Q4

REPORT INFORMATION
  Report Type: 
  Country: None (occurrence: None)
  Receive Date: 20051006
  Receipt Date: 20050926
  Transmission Date: 20060501
  Serious: Yes (Death)
  Sender: FDA-Public Use
  Company Number: US-MERCK-0509USA03881

PATIENT
  Sex: Male

DRUGS (1)
  1. VIOXX [Suspect]
     Indication: PAIN
     Route: 048
     Dates: start: 20030625, end: 20040622

REACTIONS (3)
  - CEREBROVASCULAR ACCIDENT [None]
  - DROWNING [None]
  - MYOCARDIAL INFARCTION [None]
